FAERS Safety Report 25283711 (Version 1)
Quarter: 2025Q2

REPORT INFORMATION
  Report Type: Spontaneous
  Country: US (occurrence: US)
  Receive Date: 20250508
  Receipt Date: 20250508
  Transmission Date: 20250717
  Serious: No
  Sender: ELI LILLY AND COMPANY
  Company Number: US-ELI_LILLY_AND_COMPANY-US202505005115

PATIENT
  Age: 78 Year
  Sex: Male

DRUGS (1)
  1. TALTZ [Suspect]
     Active Substance: IXEKIZUMAB
     Route: 065

REACTIONS (2)
  - Incorrect dose administered [Unknown]
  - Psoriasis [Unknown]

NARRATIVE: CASE EVENT DATE: 20250401
